FAERS Safety Report 9439135 (Version 2)
Quarter: 2013Q3

REPORT INFORMATION
  Report Type: Spontaneous
  Country: US (occurrence: US)
  Receive Date: 20130802
  Receipt Date: 20130819
  Transmission Date: 20140515
  Serious: Yes (Other)
  Sender: FDA-Public Use
  Company Number: US-ABBOTT-13P-163-1125644-00

PATIENT
  Sex: Female
  Weight: 3.22 kg

DRUGS (6)
  1. HUMIRA [Suspect]
     Indication: BEHCET^S SYNDROME
     Dates: start: 201202, end: 201210
  2. HUMIRA [Suspect]
     Dates: start: 201304
  3. DAPSONE [Concomitant]
     Indication: ULCER
  4. PREDNISONE [Concomitant]
     Indication: BEHCET^S SYNDROME
  5. UNKNOWN PAIN MEDICATIONS [Concomitant]
     Indication: PAIN
  6. REMICADE [Concomitant]
     Dates: start: 201210, end: 201304

REACTIONS (8)
  - Blindness [Recovering/Resolving]
  - Behcet^s syndrome [Not Recovered/Not Resolved]
  - Off label use [Not Recovered/Not Resolved]
  - Eye ulcer [Unknown]
  - Visual field defect [Not Recovered/Not Resolved]
  - Visual field defect [Not Recovered/Not Resolved]
  - Mucosal ulceration [Not Recovered/Not Resolved]
  - Joint swelling [Not Recovered/Not Resolved]
